FAERS Safety Report 16853159 (Version 2)
Quarter: 2020Q3

REPORT INFORMATION
  Report Type: Spontaneous
  Country: US (occurrence: US)
  Receive Date: 20190925
  Receipt Date: 20200824
  Transmission Date: 20201102
  Serious: Yes (Other)
  Sender: FDA-Public Use
  Company Number: US-GILEAD-2019-0429655

PATIENT
  Age: 66 Year
  Sex: Male
  Weight: 58.96 kg

DRUGS (31)
  1. CRIXIVAN [Concomitant]
     Active Substance: INDINAVIR SULFATE
  2. DIAZEPAM. [Concomitant]
     Active Substance: DIAZEPAM
  3. FLUCONAZOLE. [Concomitant]
     Active Substance: FLUCONAZOLE
  4. REMERON [Concomitant]
     Active Substance: MIRTAZAPINE
  5. ISENTRESS [Concomitant]
     Active Substance: RALTEGRAVIR POTASSIUM
  6. ATENOLOL. [Concomitant]
     Active Substance: ATENOLOL
  7. GEMFIBROZIL. [Concomitant]
     Active Substance: GEMFIBROZIL
  8. PRAVASTATIN. [Concomitant]
     Active Substance: PRAVASTATIN
  9. SERTRALINE [Concomitant]
     Active Substance: SERTRALINE HYDROCHLORIDE
  10. VIREAD [Suspect]
     Active Substance: TENOFOVIR DISOPROXIL FUMARATE
     Indication: HIV INFECTION
     Dosage: UNK
     Route: 048
     Dates: start: 20011212, end: 20041115
  11. CALCIUM CITRATE [Concomitant]
     Active Substance: CALCIUM CITRATE
  12. BIKTARVY [Concomitant]
     Active Substance: BICTEGRAVIR SODIUM\EMTRICITABINE\TENOFOVIR ALAFENAMIDE FUMARATE
  13. SUSTIVA [Concomitant]
     Active Substance: EFAVIRENZ
  14. CIPROFLOXACIN. [Concomitant]
     Active Substance: CIPROFLOXACIN
  15. GATIFLOXACIN. [Concomitant]
     Active Substance: GATIFLOXACIN
  16. TRICOR [ADENOSINE] [Concomitant]
     Active Substance: ADENOSINE
  17. EMTRIVA [Concomitant]
     Active Substance: EMTRICITABINE
  18. PANCRELIPASE. [Concomitant]
     Active Substance: PANCRELIPASE
  19. CLARITHROMYCIN. [Concomitant]
     Active Substance: CLARITHROMYCIN
  20. EPIVIR [Concomitant]
     Active Substance: LAMIVUDINE
  21. KALETRA [Concomitant]
     Active Substance: LOPINAVIR\RITONAVIR
  22. ACYCLOVIR [ACICLOVIR] [Concomitant]
     Active Substance: ACYCLOVIR
  23. ERYTHROMYCIN. [Concomitant]
     Active Substance: ERYTHROMYCIN
  24. FLUOXETINE [Concomitant]
     Active Substance: FLUOXETINE HYDROCHLORIDE
  25. ROSUVASTATIN. [Concomitant]
     Active Substance: ROSUVASTATIN
  26. TRUVADA [Suspect]
     Active Substance: EMTRICITABINE\TENOFOVIR DISOPROXIL FUMARATE
     Indication: HIV INFECTION
     Dosage: UNK
     Route: 048
     Dates: start: 20041115, end: 20080926
  27. ZERIT [Concomitant]
     Active Substance: STAVUDINE
  28. ATOVAQUONE. [Concomitant]
     Active Substance: ATOVAQUONE
  29. LISINOPRIL. [Concomitant]
     Active Substance: LISINOPRIL
  30. ULTRASE [AMYLASE;LIPASE;PROTEASE NOS] [Concomitant]
  31. ECONAZOLE. [Concomitant]
     Active Substance: ECONAZOLE NITRATE

REACTIONS (15)
  - Blood creatinine increased [Not Recovered/Not Resolved]
  - Osteopenia [Not Recovered/Not Resolved]
  - Emotional distress [Not Recovered/Not Resolved]
  - Quality of life decreased [Not Recovered/Not Resolved]
  - Economic problem [Not Recovered/Not Resolved]
  - Osteoporosis [Not Recovered/Not Resolved]
  - Upper limb fracture [Unknown]
  - Loss of personal independence in daily activities [Not Recovered/Not Resolved]
  - Lower limb fracture [Unknown]
  - Foot fracture [Recovered/Resolved]
  - Anhedonia [Not Recovered/Not Resolved]
  - Pain [Not Recovered/Not Resolved]
  - Anxiety [Not Recovered/Not Resolved]
  - Renal impairment [Unknown]
  - Fear [Not Recovered/Not Resolved]

NARRATIVE: CASE EVENT DATE: 200412
